FAERS Safety Report 13306402 (Version 2)
Quarter: 2017Q1

REPORT INFORMATION
  Report Type: Report from Study
  Country: US (occurrence: US)
  Receive Date: 20170308
  Receipt Date: 20170321
  Transmission Date: 20170428
  Serious: Yes (Hospitalization, Other)
  Sender: FDA-Public Use
  Company Number: US-BAYER-2016-028985

PATIENT
  Age: 55 Year
  Sex: Female
  Weight: 107.94 kg

DRUGS (11)
  1. UPTRAVI [Suspect]
     Active Substance: SELEXIPAG
     Dosage: 400 ?G, BID
  2. ADEMPAS [Suspect]
     Active Substance: RIOCIGUAT
     Indication: PULMONARY ARTERIAL HYPERTENSION
     Dosage: 1 MG, TID
     Route: 048
  3. ADEMPAS [Suspect]
     Active Substance: RIOCIGUAT
     Indication: PULMONARY ARTERIAL HYPERTENSION
     Dosage: 1 MG, TID
     Route: 048
  4. ADEMPAS [Suspect]
     Active Substance: RIOCIGUAT
     Indication: PULMONARY ARTERIAL HYPERTENSION
     Dosage: 1 MG, TID
     Route: 048
  5. UPTRAVI [Suspect]
     Active Substance: SELEXIPAG
     Dosage: 800 ?G, BID
  6. UPTRAVI [Suspect]
     Active Substance: SELEXIPAG
     Dosage: UNK
  7. UPTRAVI [Suspect]
     Active Substance: SELEXIPAG
     Dosage: 600 ?G, BID
  8. ADEMPAS [Suspect]
     Active Substance: RIOCIGUAT
     Indication: PULMONARY ARTERIAL HYPERTENSION
     Dosage: UNK
     Dates: start: 20160115
  9. ADEMPAS [Suspect]
     Active Substance: RIOCIGUAT
     Indication: PULMONARY ARTERIAL HYPERTENSION
     Dosage: 1.5 MG, TID
     Route: 048
     Dates: start: 20160312, end: 20160401
  10. ADEMPAS [Suspect]
     Active Substance: RIOCIGUAT
     Indication: PULMONARY ARTERIAL HYPERTENSION
     Dosage: 1 MG, TID
     Route: 048
  11. UPTRAVI [Suspect]
     Active Substance: SELEXIPAG
     Dosage: 600 ?G, BID

REACTIONS (41)
  - Postmenopausal haemorrhage [None]
  - Sensation of foreign body [None]
  - Dyspepsia [None]
  - Pain [Unknown]
  - Feeling abnormal [Unknown]
  - Pre-existing condition improved [Unknown]
  - Dyspepsia [Unknown]
  - Hypoglycaemia [Unknown]
  - Anaemia [Unknown]
  - Speech disorder [Unknown]
  - Skin infection [None]
  - Hospitalisation [None]
  - Intentional product misuse [Unknown]
  - Diarrhoea [Unknown]
  - Gastric disorder [Unknown]
  - Neuropathy peripheral [Unknown]
  - Dysgeusia [Unknown]
  - Abdominal distension [Unknown]
  - Arthralgia [Unknown]
  - Fatigue [None]
  - Myalgia [Unknown]
  - Dysgeusia [None]
  - Drug intolerance [Not Recovered/Not Resolved]
  - Feeling abnormal [Unknown]
  - Pain in jaw [Unknown]
  - Gastrointestinal disorder [Unknown]
  - Vomiting [Unknown]
  - Therapeutic response unexpected [Unknown]
  - Bone pain [Unknown]
  - Nausea [Unknown]
  - Malaise [None]
  - Tooth extraction [None]
  - Pain in extremity [Unknown]
  - Nasopharyngitis [Unknown]
  - Fluid retention [Unknown]
  - Mood altered [Unknown]
  - Oesophageal pain [None]
  - Flatulence [Unknown]
  - Oxygen saturation decreased [Unknown]
  - Blood glucose decreased [Unknown]
  - Dyspnoea [Not Recovered/Not Resolved]

NARRATIVE: CASE EVENT DATE: 20160228
